FAERS Safety Report 8817866 (Version 1)
Quarter: 2012Q4

REPORT INFORMATION
  Report Type: 
  Country: US (occurrence: US)
  Receive Date: 20121004
  Receipt Date: 20121004
  Transmission Date: 20130627
  Serious: Yes (Other)
  Sender: FDA-Public Use
  Company Number: US-ROCHE-1072426

PATIENT
  Age: 18 Year
  Sex: Male
  Weight: 86.26 kg

DRUGS (7)
  1. ACCUTANE [Suspect]
     Indication: ACNE
     Route: 048
     Dates: start: 19920310, end: 199209
  2. ACCUTANE [Suspect]
     Route: 048
     Dates: start: 19930203
  3. ACCUTANE [Suspect]
     Route: 048
     Dates: start: 19930413, end: 19930708
  4. ACCUTANE [Suspect]
     Route: 048
     Dates: start: 19950512, end: 19951030
  5. ACCUTANE [Suspect]
     Route: 048
     Dates: start: 19960109, end: 199610
  6. ACCUTANE [Suspect]
     Route: 048
     Dates: start: 19970305, end: 19970405
  7. ACCUTANE [Suspect]
     Route: 048
     Dates: start: 19980226, end: 19981230

REACTIONS (7)
  - Inflammatory bowel disease [Unknown]
  - Colitis ulcerative [Unknown]
  - Anxiety [Unknown]
  - Diarrhoea [Unknown]
  - Pharyngitis [Unknown]
  - Viral rash [Recovering/Resolving]
  - Lip dry [Unknown]
